FAERS Safety Report 10672721 (Version 1)
Quarter: 2014Q4

REPORT INFORMATION
  Report Type: Spontaneous
  Country: MY (occurrence: MY)
  Receive Date: 20141223
  Receipt Date: 20141223
  Transmission Date: 20150529
  Serious: Yes (Other)
  Sender: FDA-Public Use
  Company Number: ALCN2014MY007193

PATIENT
  Age: 64 Year
  Sex: Male

DRUGS (1)
  1. TROPICAMIDE. [Suspect]
     Active Substance: TROPICAMIDE
     Indication: MYDRIASIS
     Dosage: 1 DF, QD
     Route: 047

REACTIONS (2)
  - Corneal oedema [Not Recovered/Not Resolved]
  - Visual acuity reduced [Not Recovered/Not Resolved]
